FAERS Safety Report 10269049 (Version 2)
Quarter: 2015Q3

REPORT INFORMATION
  Report Type: Spontaneous
  Country: US (occurrence: US)
  Receive Date: 20140630
  Receipt Date: 20150817
  Transmission Date: 20151125
  Serious: No
  Sender: FDA-Public Use
  Company Number: US-GILEAD-2014-0106974

PATIENT
  Sex: Male

DRUGS (2)
  1. VENTAVIS [Concomitant]
     Active Substance: ILOPROST
     Route: 065
  2. LETAIRIS [Suspect]
     Active Substance: AMBRISENTAN
     Indication: PRODUCT USED FOR UNKNOWN INDICATION
     Dosage: 5 MG, QD
     Route: 065
     Dates: start: 20140410

REACTIONS (2)
  - Constipation [Unknown]
  - Headache [Unknown]
